FAERS Safety Report 5594323-0 (Version None)
Quarter: 2008Q1

REPORT INFORMATION
  Report Type: 
  Country: None (occurrence: None)
  Receive Date: 20080115
  Receipt Date: 20080102
  Transmission Date: 20080703
  Serious: Yes (Hospitalization)
  Sender: FDA-Public Use
  Company Number: MC200700746

PATIENT
  Age: 58 Year
  Sex: Male
  Weight: 80 kg

DRUGS (9)
  1. ANGIOMAX [Suspect]
     Indication: PERCUTANEOUS CORONARY INTERVENTION
     Dosage: 60 BOLUS, IV BOLUS, 140 INTRAVENOUS
     Route: 040
     Dates: start: 20061130, end: 20061130
  2. ANGIOMAX [Suspect]
     Indication: PERCUTANEOUS CORONARY INTERVENTION
     Dosage: 60 BOLUS, IV BOLUS, 140 INTRAVENOUS
     Route: 040
     Dates: start: 20061130, end: 20061130
  3. ASPIRIN [Concomitant]
  4. SPIRONOLACTONE [Concomitant]
  5. ATORVASTATIN CALCIUM [Concomitant]
  6. ATENOLOL [Concomitant]
  7. OMEPRAZOLE [Concomitant]
  8. ENALAPRIL MALEATE [Concomitant]
  9. PLAVIX [Concomitant]

REACTIONS (2)
  - ANGINA UNSTABLE [None]
  - IN-STENT CORONARY ARTERY RESTENOSIS [None]
